FAERS Safety Report 17464617 (Version 1)
Quarter: 2020Q1

REPORT INFORMATION
  Report Type: Report from Study
  Country: ZA (occurrence: ZA)
  Receive Date: 20200226
  Receipt Date: 20200226
  Transmission Date: 20200409
  Serious: Yes (Hospitalization)
  Sender: FDA-Public Use
  Company Number: PHHY2017ZA013660

PATIENT
  Sex: Female

DRUGS (3)
  1. ACLASTA [Suspect]
     Active Substance: ZOLEDRONIC ACID
     Indication: OSTEOPOROSIS
     Dosage: 5 MG/DL (100 ML), Q12MO
     Route: 041
     Dates: start: 2016
  2. ACLASTA [Suspect]
     Active Substance: ZOLEDRONIC ACID
     Dosage: 5 MG/DL (100 ML), Q12MO
     Route: 041
     Dates: start: 2018
  3. ACLASTA [Suspect]
     Active Substance: ZOLEDRONIC ACID
     Dosage: 5 MG/DL (100 ML), Q12MO
     Route: 041
     Dates: start: 2017

REACTIONS (3)
  - Bone density decreased [Unknown]
  - Impaired healing [Unknown]
  - Bone disorder [Unknown]
